FAERS Safety Report 10234459 (Version 5)
Quarter: 2014Q3

REPORT INFORMATION
  Report Type: Spontaneous
  Country: US (occurrence: US)
  Receive Date: 20140613
  Receipt Date: 20140929
  Transmission Date: 20150326
  Serious: Yes (Hospitalization, Other)
  Sender: FDA-Public Use
  Company Number: US-GILEAD-2014-0105054

PATIENT
  Age: 67 Year
  Sex: Male

DRUGS (5)
  1. REVATIO [Concomitant]
     Active Substance: SILDENAFIL CITRATE
  2. ADCIRCA [Concomitant]
     Active Substance: TADALAFIL
  3. XARELTO [Concomitant]
     Active Substance: RIVAROXABAN
  4. LETAIRIS [Suspect]
     Active Substance: AMBRISENTAN
     Indication: PRODUCT USED FOR UNKNOWN INDICATION
     Dosage: 10 MG, QD
     Route: 065
     Dates: start: 20130613
  5. REMODULIN [Suspect]
     Active Substance: TREPROSTINIL
     Indication: PRODUCT USED FOR UNKNOWN INDICATION
     Route: 065

REACTIONS (8)
  - Infusion site induration [Unknown]
  - Unevaluable event [Unknown]
  - Infusion site swelling [Unknown]
  - Device related infection [Unknown]
  - Catheter site pain [Unknown]
  - Infusion site erythema [Unknown]
  - Infusion site infection [Unknown]
  - Infection [Unknown]

NARRATIVE: CASE EVENT DATE: 20140714
